FAERS Safety Report 11063083 (Version 1)
Quarter: 2015Q2

REPORT INFORMATION
  Report Type: Report from Study
  Country: US (occurrence: US)
  Receive Date: 20150424
  Receipt Date: 20150424
  Transmission Date: 20150821
  Serious: Yes (Hospitalization, Other)
  Sender: FDA-Public Use
  Company Number: US-BRISTOL-MYERS SQUIBB COMPANY-16440349

PATIENT
  Age: 72 Year
  Sex: Male
  Weight: 88 kg

DRUGS (32)
  1. BENADRYL [Concomitant]
     Active Substance: DIPHENHYDRAMINE HYDROCHLORIDE
     Dosage: 25 MG, INTERMITTENT
     Route: 042
     Dates: start: 20120116
  2. DILAUDID [Concomitant]
     Active Substance: HYDROMORPHONE HYDROCHLORIDE
     Dosage: 1DF:0.4-0.6MG
     Route: 042
     Dates: start: 20120118
  3. LISINOPRIL. [Concomitant]
     Active Substance: LISINOPRIL
     Dosage: 1DF:1TAB  LISINOPRIL 10 MG TABS
     Route: 048
  4. POTASSIUM CHLORIDE. [Concomitant]
     Active Substance: POTASSIUM CHLORIDE
     Dosage: 1DF=2 TABS  10MEQ TABLETS SUSTAINED RELEASE
     Route: 048
  5. LASIX [Concomitant]
     Active Substance: FUROSEMIDE
     Dosage: 1DF=1 TABLET  40MG TABS
     Route: 048
  6. FLAGYL [Concomitant]
     Active Substance: METRONIDAZOLE\METRONIDAZOLE HYDROCHLORIDE
     Dosage: 500 MG, TID
     Dates: start: 20120116
  7. PERCOCET [Concomitant]
     Active Substance: ACETAMINOPHEN\OXYCODONE HYDROCHLORIDE
     Dosage: 1DF:1TAB
     Route: 048
     Dates: start: 20120116
  8. VITAMIN B12 [Concomitant]
     Active Substance: CYANOCOBALAMIN
     Dosage: 500 ?G, QD
     Route: 048
  9. GARLIC. [Concomitant]
     Active Substance: GARLIC
     Dosage: 1DF:1 CAPS  GARLIC CAPS
     Route: 048
  10. PHENERGAN [Concomitant]
     Active Substance: PROMETHAZINE HYDROCHLORIDE
     Dosage: 12.5 MG, INTERMITTENT
     Route: 042
     Dates: start: 20120118
  11. ZOFRAN [Concomitant]
     Active Substance: ONDANSETRON HYDROCHLORIDE
     Indication: NAUSEA
     Dosage: ZOFRAN INJ(4MG)
     Route: 048
     Dates: start: 20120118
  12. FISH OIL [Concomitant]
     Active Substance: FISH OIL
     Dosage: 1DF:1CAP  FISH OIL 1000 MG CAPSULE
     Route: 048
  13. IMODIUM [Concomitant]
     Active Substance: LOPERAMIDE HYDROCHLORIDE
     Dosage: CAPS, 4TIMES DAILY
     Route: 048
  14. MERREM [Concomitant]
     Active Substance: MEROPENEM
     Dosage: 500 MG, UNK
  15. LOVENOX [Concomitant]
     Active Substance: ENOXAPARIN SODIUM
     Dosage: INJ
  16. MESALAMINE. [Concomitant]
     Active Substance: MESALAMINE
     Dosage: 800 MG, TID
  17. IPILIMUMAB [Suspect]
     Active Substance: IPILIMUMAB
     Indication: PROSTATE CANCER
     Dosage: 22DEC2011:160ML  11JAN2012:161ML  22FEB2012:151ML
     Route: 042
     Dates: start: 20111222, end: 20120222
  18. CIPRO [Concomitant]
     Active Substance: CIPROFLOXACIN HYDROCHLORIDE
     Dosage: 500 MG, BID
     Dates: start: 20120116
  19. UNASYN [Concomitant]
     Active Substance: AMPICILLIN SODIUM\SULBACTAM SODIUM
     Dosage: 3 G, UNK
     Route: 042
     Dates: start: 20120116
  20. PREDNISONE. [Concomitant]
     Active Substance: PREDNISONE
     Dosage: 1DF=1 TABLET  5MG TABS
     Route: 048
  21. PRINIVIL [Concomitant]
     Active Substance: LISINOPRIL
     Dosage: 10 MG, QD
     Dates: start: 20120118
  22. MULTI VITAMIN [Concomitant]
     Active Substance: VITAMINS
     Dosage: 1DF:1TAB
     Route: 048
  23. LOPERAMIDE [Concomitant]
     Active Substance: LOPERAMIDE
     Indication: DIARRHOEA
     Dosage: AS NECESSARY
  24. CALTRATE [Concomitant]
     Active Substance: CALCIUM CARBONATE
     Dosage: 1FD:1TAB  AT EVENING  CALTRATE CHEWABLE TABS
     Route: 048
  25. PROBIOTICA [Concomitant]
     Active Substance: PROBIOTICS NOS
     Dosage: 1DF=1 CAPS
     Route: 048
  26. LUPRON [Concomitant]
     Active Substance: LEUPROLIDE ACETATE
     Dosage: 22.5 MG, Q3MO
     Route: 030
  27. REGLAN [Concomitant]
     Active Substance: METOCLOPRAMIDE HYDROCHLORIDE
     Dosage: 5 MG, INTERMITTENT
     Route: 042
     Dates: start: 20120118
  28. NARCAN [Concomitant]
     Active Substance: NALOXONE HYDROCHLORIDE
     Dosage: 1 DF, UNK
     Route: 042
     Dates: start: 20120118
  29. LACTULOSE. [Concomitant]
     Active Substance: LACTULOSE
     Dosage: 1DF=960ML(30) 3 TIMES A DAY
     Route: 048
  30. TYLENOL [Concomitant]
     Active Substance: ACETAMINOPHEN
     Dosage: TABS  1DF=325-650MG
  31. PNEUMOVAX 23 [Concomitant]
     Active Substance: PNEUMOCOCCAL VACCINE, POLYVALENT 23
     Dosage: INJ
  32. FLUZONE [Concomitant]
     Active Substance: INFLUENZA A VIRUS A/CALIFORNIA/7/2009 X-179A (H1N1) ANTIGEN (FORMALDEHYDE INACTIVATED)\INFLUENZA A VIRUS A/VICTORIA/210/2009 X-187 (H3N2) ANTIGEN (FORMALDEHYDE INACTIVATED)\INFLUENZA B VIRUS B/BRISBANE/60/2008 ANTIGEN (FORMALDEHYDE INACTIVATED)
     Dosage: INJ

REACTIONS (4)
  - Sepsis [Recovered/Resolved]
  - Dehydration [None]
  - Colitis [Recovered/Resolved]
  - Clostridium test positive [None]

NARRATIVE: CASE EVENT DATE: 20120227
